FAERS Safety Report 6958575-4 (Version None)
Quarter: 2010Q3

REPORT INFORMATION
  Report Type: 
  Country: None (occurrence: None)
  Receive Date: 20100831
  Receipt Date: 20100823
  Transmission Date: 20110219
  Serious: Yes (Hospitalization)
  Sender: FDA-Public Use
  Company Number: US-US-EMD SERONO, INC.-7015463

PATIENT
  Sex: Female

DRUGS (2)
  1. REBIF [Suspect]
     Indication: PRODUCT USED FOR UNKNOWN INDICATION
     Route: 058
     Dates: start: 20100713
  2. ADVIL LIQUI-GELS [Concomitant]
     Indication: PREMEDICATION

REACTIONS (3)
  - HEMIPARESIS [None]
  - INJECTION SITE ERYTHEMA [None]
  - MIGRAINE [None]
